FAERS Safety Report 26022287 (Version 1)
Quarter: 2025Q4

REPORT INFORMATION
  Report Type: Spontaneous
  Country: EU (occurrence: EU)
  Receive Date: 20251110
  Receipt Date: 20251110
  Transmission Date: 20260117
  Serious: Yes (Hospitalization)
  Sender: NEXUS PHARMACEUTICALS
  Company Number: EU-Nexus Pharma-000517

PATIENT
  Age: 11 Year
  Sex: Male
  Weight: 35 kg

DRUGS (3)
  1. LEVETIRACETAM [Suspect]
     Active Substance: LEVETIRACETAM
     Indication: Seizure
     Dosage: LOADING DOSE ADMINISTERED OVER 30 MINUTES
  2. SODIUM CHLORIDE [Concomitant]
     Active Substance: SODIUM CHLORIDE
  3. LEVETIRACETAM [Suspect]
     Active Substance: LEVETIRACETAM
     Indication: Seizure
     Dosage: MAINTENANCE DOSE OVER 30 MINUTES

REACTIONS (1)
  - Metabolic acidosis [Unknown]
